FAERS Safety Report 24922958 (Version 1)
Quarter: 2025Q1

REPORT INFORMATION
  Report Type: Spontaneous
  Country: US (occurrence: None)
  Receive Date: 20250204
  Receipt Date: 20250204
  Transmission Date: 20250409
  Serious: No
  Sender: FDA-CTU
  Company Number: None

PATIENT
  Age: 55 Year
  Sex: Female

DRUGS (1)
  1. AMBRISENTAN [Suspect]
     Active Substance: AMBRISENTAN
     Indication: Pulmonary hypertension
     Dosage: 5MG QD ORAL
     Route: 048

REACTIONS (6)
  - Product dose omission in error [None]
  - Heart rate decreased [None]
  - Hot flush [None]
  - Flushing [None]
  - Nasal congestion [None]
  - Product quality issue [None]
